FAERS Safety Report 11270681 (Version 2)
Quarter: 2017Q1

REPORT INFORMATION
  Report Type: Report from Study
  Country: DE (occurrence: DE)
  Receive Date: 20150714
  Receipt Date: 20170309
  Transmission Date: 20170428
  Serious: Yes (Death, Life-Threatening)
  Sender: FDA-Public Use
  Company Number: DE-TEVA-576290GER

PATIENT
  Age: 63 Year
  Sex: Male
  Weight: 69 kg

DRUGS (12)
  1. RITUXIMAB [Suspect]
     Active Substance: RITUXIMAB
     Dosage: LAST DOSE
     Route: 065
     Dates: start: 20150327, end: 20150528
  2. CYTARABINE. [Suspect]
     Active Substance: CYTARABINE
     Dosage: LAST DOSE
     Route: 065
     Dates: start: 20150329, end: 20150530
  3. CITALOPRAM [Concomitant]
     Active Substance: CITALOPRAM HYDROBROMIDE
     Dates: start: 20150527, end: 20150606
  4. PANTOPRAZOLE [Concomitant]
     Active Substance: PANTOPRAZOLE SODIUM
     Dates: end: 20150606
  5. REMERGIL [Concomitant]
     Active Substance: MIRTAZAPINE
     Dates: start: 20150527, end: 20150606
  6. CLONT [Concomitant]
     Dates: start: 20150605, end: 20150606
  7. FENTANYL. [Concomitant]
     Active Substance: FENTANYL
     Dates: start: 20150527, end: 20150606
  8. NEUPOGEN [Concomitant]
     Active Substance: FILGRASTIM
     Dates: start: 20150529, end: 20150606
  9. DEXAMETHASONE. [Suspect]
     Active Substance: DEXAMETHASONE
     Dosage: LAST DOSE
     Route: 065
     Dates: start: 20150328, end: 20150601
  10. CLEXANE [Concomitant]
     Active Substance: ENOXAPARIN SODIUM
     Dates: start: 20150527, end: 20150606
  11. CISPLATIN. [Suspect]
     Active Substance: CISPLATIN
     Dosage: LAST DOSE
     Route: 065
     Dates: start: 20150328, end: 20150529
  12. TEMSIROLIMUS [Suspect]
     Active Substance: TEMSIROLIMUS
     Dosage: CYCLE ON DAY 1 AND 8
     Route: 042
     Dates: start: 20150326, end: 20150603

REACTIONS (1)
  - Cerebral haemorrhage [Fatal]
